FAERS Safety Report 4672388-8 (Version None)
Quarter: 2005Q2

REPORT INFORMATION
  Report Type: 
  Country: None (occurrence: None)
  Receive Date: 20050524
  Receipt Date: 20050513
  Transmission Date: 20051028
  Serious: Yes (Hospitalization)
  Sender: FDA-Public Use
  Company Number: US-KINGPHARMUSA00001-K200500622

PATIENT
  Age: 76 Year
  Sex: Male

DRUGS (9)
  1. ALTACE [Suspect]
     Indication: HYPERTENSION
     Dosage: 5 MG, QD
     Route: 048
     Dates: end: 20050401
  2. ALTACE [Suspect]
     Dosage: 5 MG, QD
     Route: 048
     Dates: start: 20050401
  3. LASILIX [Suspect]
     Indication: HYPERTENSION
     Dosage: 2 U, QD
     Route: 048
     Dates: end: 20050401
  4. LASILIX [Suspect]
     Dosage: 2 U, QD
     Route: 048
     Dates: start: 20050401
  5. ALDACTONE [Suspect]
     Indication: CARDIAC FAILURE
     Dosage: 1 U, QD
     Route: 048
     Dates: end: 20050401
  6. SKENAN LP [Suspect]
     Indication: OSTEOARTHRITIS
     Dosage: 60 MG, QD
     Route: 048
     Dates: start: 20050401, end: 20050403
  7. METFORMINE ^MERCK^ [Concomitant]
     Indication: DIABETES MELLITUS
     Route: 048
     Dates: end: 20050401
  8. PREVISCAN [Concomitant]
     Route: 048
     Dates: end: 20050401
  9. FENOFIBRATE [Concomitant]
     Dosage: 1 U, UNK
     Route: 048
     Dates: end: 20050401

REACTIONS (9)
  - BENIGN PROSTATIC HYPERPLASIA [None]
  - CONDITION AGGRAVATED [None]
  - DRUG INTERACTION [None]
  - DRUG INTOLERANCE [None]
  - FLUID INTAKE REDUCED [None]
  - HYPERKALAEMIA [None]
  - MALNUTRITION [None]
  - MOTOR DYSFUNCTION [None]
  - RENAL FAILURE ACUTE [None]
